FAERS Safety Report 6030890-0 (Version None)
Quarter: 2009Q1

REPORT INFORMATION
  Report Type: 
  Country: None (occurrence: None)
  Receive Date: 20090106
  Receipt Date: 20081221
  Transmission Date: 20090719
  Serious: Yes (Other)
  Sender: FDA-Public Use
  Company Number: 2008SP023332

PATIENT
  Age: 58 Year
  Sex: Female

DRUGS (4)
  1. RIBAVIRIN [Suspect]
     Indication: HEPATITIS C
     Dosage: 1600 MG; PO
     Route: 048
     Dates: start: 20070101, end: 20071201
  2. RIBAVIRIN [Suspect]
     Indication: HEPATITIS C
     Dosage: 1600 MG; PO
     Route: 048
     Dates: start: 20081114
  3. PEGASYS [Suspect]
     Indication: HEPATITIS C
     Dosage: SC
     Route: 058
     Dates: start: 20070101, end: 20071201
  4. HUMALOG [Concomitant]

REACTIONS (9)
  - CHEST PAIN [None]
  - DIARRHOEA [None]
  - DIZZINESS [None]
  - EAR INFECTION [None]
  - IMMUNE SYSTEM DISORDER [None]
  - LATENT TUBERCULOSIS [None]
  - NO THERAPEUTIC RESPONSE [None]
  - OVERDOSE [None]
  - TYMPANIC MEMBRANE PERFORATION [None]
